FAERS Safety Report 20769281 (Version 2)
Quarter: 2022Q2

REPORT INFORMATION
  Report Type: Spontaneous
  Country: US (occurrence: PR)
  Receive Date: 20220429
  Receipt Date: 20220603
  Transmission Date: 20220721
  Serious: No
  Sender: FDA-Public Use
  Company Number: US-PFIZER INC-202200519683

PATIENT
  Age: 11 Year
  Sex: Male
  Weight: 34.02 kg

DRUGS (1)
  1. GENOTROPIN [Suspect]
     Active Substance: SOMATROPIN
     Dosage: UNK, DAILY

REACTIONS (2)
  - Drug dose omission by device [Recovered/Resolved]
  - Device information output issue [Unknown]

NARRATIVE: CASE EVENT DATE: 20220331
